FAERS Safety Report 9169346 (Version 1)
Quarter: 2013Q1

REPORT INFORMATION
  Report Type: Spontaneous
  Country: BE (occurrence: BE)
  Receive Date: 20130318
  Receipt Date: 20130318
  Transmission Date: 20140127
  Serious: Yes (Hospitalization, Other)
  Sender: FDA-Public Use
  Company Number: BE-PFIZER INC-2013087167

PATIENT
  Sex: Male

DRUGS (6)
  1. LYRICA [Suspect]
     Dosage: 150 MG, 6 TABLETS/DAY
     Route: 048
  2. LYRICA [Suspect]
     Dosage: 150 MG 2 TABLETS/DAY
  3. VESICARE [Concomitant]
  4. SIPRALEXA [Concomitant]
  5. MOSCONTIN [Concomitant]
  6. CALCIUM [Concomitant]

REACTIONS (7)
  - Rhabdomyolysis [Unknown]
  - Urinary tract infection [Unknown]
  - Renal failure [Unknown]
  - Respiratory disorder [Unknown]
  - Anaemia [Unknown]
  - Sensation of heaviness [Not Recovered/Not Resolved]
  - Constipation [Unknown]
